FAERS Safety Report 7097803-4 (Version None)
Quarter: 2010Q4

REPORT INFORMATION
  Report Type: 
  Country: None (occurrence: None)
  Receive Date: 20101112
  Receipt Date: 20100106
  Transmission Date: 20110411
  Serious: Yes (Hospitalization)
  Sender: FDA-Public Use
  Company Number: US-ASTRAZENECA-2009SE19831

PATIENT
  Age: 688 Month
  Sex: Female
  Weight: 90.7 kg

DRUGS (18)
  1. SEROQUEL [Suspect]
     Indication: PSYCHOTIC DISORDER
     Route: 048
     Dates: start: 20050721
  2. SEROQUEL [Suspect]
     Dosage: 200,300,400
     Route: 048
     Dates: start: 20050721
  3. WELLBUTRIN SR [Concomitant]
     Dates: start: 20050721
  4. GEODON [Concomitant]
     Dates: start: 20050721
  5. ZOLOFT [Concomitant]
     Dates: start: 20050721
  6. CLONAZEPAM [Concomitant]
     Dates: start: 20050727
  7. BUSPIRONE HCL [Concomitant]
     Dates: start: 20050814
  8. HYDROCODONE [Concomitant]
     Dates: start: 20050101
  9. TRAMADOL HCL [Concomitant]
     Dates: start: 20080101
  10. SYNTHROID [Concomitant]
     Dates: start: 20080101
  11. KLOR-CON [Concomitant]
     Dates: start: 20080101
  12. ACULAR [Concomitant]
     Dates: start: 20080101
  13. AVAPRO [Concomitant]
     Dates: start: 20080101
  14. IBUPROFEN [Concomitant]
     Dates: start: 20050101
  15. CYCLOBENZAPRINE [Concomitant]
     Dates: start: 20060101
  16. FERROUS SULFATE [Concomitant]
     Dates: start: 20050101
  17. KLONOPIN [Concomitant]
  18. BUSPAR [Concomitant]

REACTIONS (3)
  - PAIN [None]
  - ROTATOR CUFF SYNDROME [None]
  - TYPE 2 DIABETES MELLITUS [None]
